FAERS Safety Report 5067486-3 (Version None)
Quarter: 2006Q3

REPORT INFORMATION
  Report Type: 
  Country: None (occurrence: None)
  Receive Date: 20060727
  Receipt Date: 20060720
  Transmission Date: 20061208
  Serious: Yes (Other)
  Sender: FDA-Public Use
  Company Number: 2006-07-1239

PATIENT
  Sex: Female

DRUGS (1)
  1. AERIUS (DESLORATADINE) TABLETS [Suspect]
     Indication: HYPERSENSITIVITY
     Dosage: 1 TAB ORAL
     Route: 048

REACTIONS (3)
  - COAGULOPATHY [None]
  - DRUG EXPOSURE DURING PREGNANCY [None]
  - PREMATURE BABY [None]
